FAERS Safety Report 4622731-0 (Version None)
Quarter: 2005Q1

REPORT INFORMATION
  Report Type: 
  Country: None (occurrence: None)
  Receive Date: 20050317
  Receipt Date: 20040810
  Transmission Date: 20050727
  Serious: Yes (Other)
  Sender: FDA-Public Use
  Company Number: PHEH2004US08483

PATIENT
  Age: 42 Year
  Sex: Female

DRUGS (3)
  1. TRILEPTAL [Suspect]
     Indication: NEUROPATHIC PAIN
     Dosage: 600 MG, BID; ORAL
     Route: 048
  2. COPAXONE [Concomitant]
  3. AMANTADINE [Concomitant]

REACTIONS (4)
  - ASTHENIA [None]
  - DISORIENTATION [None]
  - HYPONATRAEMIA [None]
  - LOSS OF CONSCIOUSNESS [None]
